FAERS Safety Report 17346321 (Version 1)
Quarter: 2020Q1

REPORT INFORMATION
  Report Type: Spontaneous
  Country: US (occurrence: US)
  Receive Date: 20200129
  Receipt Date: 20200129
  Transmission Date: 20200409
  Serious: No
  Sender: FDA-Public Use
  Company Number: None

PATIENT
  Age: 64 Year
  Sex: Male
  Weight: 112.5 kg

DRUGS (1)
  1. SOTALOL. [Suspect]
     Active Substance: SOTALOL
     Indication: VENTRICULAR TACHYCARDIA
     Dates: start: 20200116, end: 20200128

REACTIONS (5)
  - Insomnia [None]
  - Anxiety [None]
  - Nervousness [None]
  - Heart rate irregular [None]
  - Abdominal pain [None]

NARRATIVE: CASE EVENT DATE: 20200116
